FAERS Safety Report 8362480-9 (Version None)
Quarter: 2012Q2

REPORT INFORMATION
  Report Type: 
  Country: None (occurrence: None)
  Receive Date: 20120514
  Receipt Date: 20120514
  Transmission Date: 20120825
  Serious: No
  Sender: FDA-Public Use
  Company Number: None

PATIENT
  Age: 30 Year
  Sex: Female
  Weight: 48 kg

DRUGS (1)
  1. ALVESCO [Suspect]
     Indication: ASTHMA
     Dosage: 160 MG ONCE A DAY PO
     Route: 048
     Dates: start: 20120401, end: 20120508

REACTIONS (3)
  - HEADACHE [None]
  - HALLUCINATION, VISUAL [None]
  - SINUSITIS [None]
